FAERS Safety Report 25902433 (Version 1)
Quarter: 2025Q4

REPORT INFORMATION
  Report Type: Spontaneous
  Country: US (occurrence: US)
  Receive Date: 20251009
  Receipt Date: 20251009
  Transmission Date: 20260117
  Serious: No
  Sender: ALEXION PHARMACEUTICALS
  Company Number: US-AstraZeneca-CH-00966407A

PATIENT
  Sex: Female

DRUGS (1)
  1. BREZTRI [Suspect]
     Active Substance: BUDESONIDE\FORMOTEROL\GLYCOPYRROLATE
     Indication: Chronic obstructive pulmonary disease
     Dosage: 2 MICROGRAM PER INHALATION, BID

REACTIONS (1)
  - Dysphonia [Recovered/Resolved]

NARRATIVE: CASE EVENT DATE: 20250915
